FAERS Safety Report 8638604 (Version 3)
Quarter: 2013Q3

REPORT INFORMATION
  Report Type: Spontaneous
  Country: US (occurrence: US)
  Receive Date: 20120627
  Receipt Date: 20130722
  Transmission Date: 20140515
  Serious: Yes (Hospitalization)
  Sender: FDA-Public Use
  Company Number: US-BAYER-2012-061137

PATIENT
  Age: 37 Year
  Sex: Female
  Weight: 127 kg

DRUGS (9)
  1. YAZ [Suspect]
     Indication: PREMENSTRUAL DYSPHORIC DISORDER
     Dosage: UNK
     Dates: start: 2008, end: 2011
  2. YAZ [Suspect]
     Indication: ACNE
  3. PROVENTIL [Concomitant]
     Dosage: UNK UNK, PRN
  4. SINGULAIR [Concomitant]
     Dosage: 10 MG, UNK
  5. LOTRISONE [Concomitant]
     Dosage: UNK
  6. ZOVIRAX [Concomitant]
  7. VALACICLOVIR [Concomitant]
     Dosage: 500 MG, UNK
  8. HYDROCODONE/ACETAMINOPHEN [Concomitant]
     Dosage: 7.5/500 MG
  9. MECLIZINE [Concomitant]
     Indication: DIZZINESS

REACTIONS (5)
  - Cerebrovascular accident [None]
  - Pulmonary embolism [None]
  - Deep vein thrombosis [None]
  - Pain [None]
  - Pain [None]
